FAERS Safety Report 10016624 (Version 2)
Quarter: 2014Q1

REPORT INFORMATION
  Report Type: Spontaneous
  Country: US (occurrence: US)
  Receive Date: 20140317
  Receipt Date: 20140317
  Transmission Date: 20141002
  Serious: No
  Sender: FDA-Public Use
  Company Number: US-ALLERGAN-1307114US

PATIENT
  Sex: Female

DRUGS (4)
  1. FML OINTMENT [Suspect]
     Indication: DERMATITIS CONTACT
     Dosage: UNK, BID
     Route: 061
     Dates: start: 20130320, end: 20130321
  2. METFORMIN [Concomitant]
     Indication: DIABETES MELLITUS
  3. GLIPIZIDE [Concomitant]
     Indication: DIABETES MELLITUS
  4. SYNTHROID [Concomitant]
     Indication: THYROID DISORDER

REACTIONS (11)
  - Parosmia [Recovered/Resolved]
  - Ageusia [Recovered/Resolved]
  - Eyelids pruritus [Recovered/Resolved]
  - Pruritus [Recovered/Resolved]
  - Pruritus [Recovered/Resolved]
  - Sensory disturbance [Recovered/Resolved]
  - Eyelid oedema [Recovered/Resolved]
  - Eye pain [Recovered/Resolved]
  - Vision blurred [Recovered/Resolved]
  - Dysgeusia [Recovered/Resolved]
  - Dysgeusia [Recovered/Resolved]
